FAERS Safety Report 8219665-1 (Version None)
Quarter: 2012Q1

REPORT INFORMATION
  Report Type: 
  Country: None (occurrence: None)
  Receive Date: 20120319
  Receipt Date: 20120313
  Transmission Date: 20120608
  Serious: Yes (Death)
  Sender: FDA-Public Use
  Company Number: US-CELGENEUS-163-21880-12012345

PATIENT
  Sex: Female

DRUGS (11)
  1. PREDNISONE [Concomitant]
     Route: 065
  2. BAYER BACK + BODY PAIN [Concomitant]
     Route: 065
  3. REVLIMID [Suspect]
     Indication: MULTIPLE MYELOMA
     Dosage: 10 MILLIGRAM
     Route: 048
     Dates: start: 20120103, end: 20120106
  4. ARICEPT [Concomitant]
     Dosage: 5 MILLIGRAM
     Route: 048
  5. NORVASC [Concomitant]
     Indication: HYPERTENSION
     Dosage: 5 MILLIGRAM
     Route: 048
  6. VELCADE [Concomitant]
     Indication: MULTIPLE MYELOMA
     Route: 065
     Dates: start: 20120103, end: 20120103
  7. NAMENDA [Concomitant]
     Dosage: 10 MILLIGRAM
     Route: 048
  8. MULTI-VITAMINS [Concomitant]
     Route: 065
  9. SEROQUEL [Concomitant]
     Dosage: 25 MILLIGRAM
     Route: 065
  10. DECADRON [Concomitant]
     Indication: MULTIPLE MYELOMA
     Route: 048
     Dates: start: 20120103, end: 20120106
  11. PEPCID [Concomitant]
     Dosage: 20 MILLIGRAM
     Route: 048
     Dates: start: 20120103, end: 20120106

REACTIONS (1)
  - UROSEPSIS [None]
